FAERS Safety Report 10466235 (Version 2)
Quarter: 2014Q4

REPORT INFORMATION
  Report Type: Spontaneous
  Country: US (occurrence: None)
  Receive Date: 20140918
  Receipt Date: 20141001
  Transmission Date: 20150528
  Serious: Yes (Life-Threatening, Hospitalization)
  Sender: FDA-Public Use
  Company Number: 20140598

PATIENT
  Age: 70 Year
  Sex: Male
  Weight: 87.3 kg

DRUGS (8)
  1. VENOFER [Suspect]
     Active Substance: IRON SUCROSE
     Indication: PRODUCT USED FOR UNKNOWN INDICATION
     Dosage: 100 MG WITH EVERY HEMODIALYSIS
     Route: 042
  2. GRANUFLO [Suspect]
     Active Substance: ACETIC ACID\SODIUM ACETATE
     Indication: PRODUCT USED FOR UNKNOWN INDICATION
  3. NATURALYTE [Suspect]
     Active Substance: ACETIC ACID\SODIUM ACETATE
     Indication: PRODUCT USED FOR UNKNOWN INDICATION
  4. 0.9% NACL [Suspect]
     Active Substance: SODIUM CHLORIDE
     Indication: PRODUCT USED FOR UNKNOWN INDICATION
  5. UNSPECIFIED DIABETIC MEDICATIONS [Suspect]
     Active Substance: UNSPECIFIED INGREDIENT
     Indication: DIABETES MELLITUS
  6. OPTIFLUX DIALYZER [Suspect]
     Active Substance: DEVICE
     Indication: PRODUCT USED FOR UNKNOWN INDICATION
  7. UNSPECIFIED ANTIHYPERTENSIVES [Suspect]
     Active Substance: UNSPECIFIED INGREDIENT
     Indication: HYPERTENSION
  8. 2008K HEMODIALYSIS SYSTEM [Suspect]
     Active Substance: DEVICE
     Indication: PRODUCT USED FOR UNKNOWN INDICATION

REACTIONS (10)
  - Haemodialysis [None]
  - Hypotension [None]
  - Respiratory failure [None]
  - Cardiac failure congestive [None]
  - White blood cell count increased [None]
  - Pleural effusion [None]
  - Hypoglycaemia [None]
  - Troponin increased [None]
  - Pyrexia [None]
  - Pulmonary oedema [None]

NARRATIVE: CASE EVENT DATE: 201408
